FAERS Safety Report 18237461 (Version 2)
Quarter: 2021Q3

REPORT INFORMATION
  Report Type: Spontaneous
  Country: US (occurrence: US)
  Receive Date: 20200907
  Receipt Date: 20210914
  Transmission Date: 20211014
  Serious: No
  Sender: FDA-Public Use
  Company Number: US-SA-2020SA240629

PATIENT
  Sex: Female

DRUGS (17)
  1. CLOPIDOGREL BISULFATE. [Concomitant]
     Active Substance: CLOPIDOGREL BISULFATE
  2. METOPROLOL TARTRATE. [Concomitant]
     Active Substance: METOPROLOL TARTRATE
  3. TRIAMCINOLONE ACETONIDE. [Concomitant]
     Active Substance: TRIAMCINOLONE ACETONIDE
  4. IRBESARTAN. [Concomitant]
     Active Substance: IRBESARTAN
  5. PARACETAMOL [Suspect]
     Active Substance: ACETAMINOPHEN
     Indication: PAIN
  6. GLIPIZIDE XL [Concomitant]
     Active Substance: GLIPIZIDE
  7. TACROLIMUS. [Concomitant]
     Active Substance: TACROLIMUS
  8. VITAMIN D2 [Concomitant]
     Active Substance: ERGOCALCIFEROL
  9. DUPIXENT [Suspect]
     Active Substance: DUPILUMAB
     Indication: DERMATITIS ALLERGIC
     Dosage: 300 MG, QOW
     Route: 058
  10. BUMETANIDE. [Concomitant]
     Active Substance: BUMETANIDE
  11. CARVEDILOL. [Concomitant]
     Active Substance: CARVEDILOL
  12. PREDNISONE. [Concomitant]
     Active Substance: PREDNISONE
  13. FAMOTIDINE. [Concomitant]
     Active Substance: FAMOTIDINE
  14. GABAPENTIN. [Concomitant]
     Active Substance: GABAPENTIN
  15. HYDROXYZINE HCL [Concomitant]
     Active Substance: HYDROXYZINE HYDROCHLORIDE
  16. LEVOCETIRIZINE DIHYDROCHLORIDE. [Concomitant]
     Active Substance: LEVOCETIRIZINE DIHYDROCHLORIDE
  17. LEVOTHYROXINE SODIUM. [Concomitant]
     Active Substance: LEVOTHYROXINE SODIUM

REACTIONS (4)
  - Pruritus [Unknown]
  - Adverse drug reaction [Unknown]
  - Abdominal pain [Unknown]
  - Product use in unapproved indication [Unknown]
